FAERS Safety Report 8953954 (Version 2)
Quarter: 2012Q4

REPORT INFORMATION
  Report Type: 
  Country: US (occurrence: US)
  Receive Date: 20121206
  Receipt Date: 20121226
  Transmission Date: 20130627
  Serious: Yes (Other)
  Sender: FDA-Public Use
  Company Number: US-ASTRAZENECA-2012SE85895

PATIENT
  Age: 78 Year
  Sex: Male

DRUGS (3)
  1. CAPRELSA [Suspect]
     Route: 048
     Dates: start: 20120927
  2. BENADRYL [Concomitant]
  3. SIMVASTATIN [Concomitant]

REACTIONS (3)
  - Disease progression [Unknown]
  - Pain in extremity [Unknown]
  - Pruritus [Unknown]
